FAERS Safety Report 16164998 (Version 2)
Quarter: 2019Q2

REPORT INFORMATION
  Report Type: Spontaneous
  Country: US (occurrence: US)
  Receive Date: 20190405
  Receipt Date: 20190531
  Transmission Date: 20190711
  Serious: No
  Sender: FDA-Public Use
  Company Number: US-PFIZER INC-2019097020

PATIENT
  Age: 6 Month
  Sex: Female

DRUGS (2)
  1. EUCRISA [Suspect]
     Active Substance: CRISABOROLE
     Dosage: UNK UNK, DAILY (1-2 X DAILY)
     Route: 061
     Dates: start: 20190213
  2. EUCRISA [Suspect]
     Active Substance: CRISABOROLE
     Indication: ECZEMA
     Dosage: UNK, 2X/DAY (APPLY TO AFFECTED AREAS TWICE A DAY IN A THIN LAYER)
     Route: 061
     Dates: start: 201902

REACTIONS (5)
  - Crying [Unknown]
  - Burning sensation [Unknown]
  - Off label use [Unknown]
  - Product use issue [Unknown]
  - Application site pain [Unknown]

NARRATIVE: CASE EVENT DATE: 2019
